FAERS Safety Report 8020446-2 (Version None)
Quarter: 2012Q1

REPORT INFORMATION
  Report Type: 
  Country: None (occurrence: None)
  Receive Date: 20120103
  Receipt Date: 20111219
  Transmission Date: 20120608
  Serious: Yes (Other)
  Sender: FDA-Public Use
  Company Number: IN-WATSON-2011-22474

PATIENT
  Age: 32 Year
  Sex: Female

DRUGS (2)
  1. BASILIXIMAB [Suspect]
     Indication: RENAL TRANSPLANT
  2. CYCLOSPORINE [Suspect]
     Indication: RENAL TRANSPLANT
     Dosage: 8 MG/KG, UNK

REACTIONS (2)
  - DRUG INTERACTION [None]
  - RENAL CORTICAL NECROSIS [None]
